FAERS Safety Report 14673566 (Version 1)
Quarter: 2018Q1

REPORT INFORMATION
  Report Type: Spontaneous
  Country: US (occurrence: US)
  Receive Date: 20180322
  Receipt Date: 20180322
  Transmission Date: 20180509
  Serious: Yes (Hospitalization)
  Sender: FDA-Public Use
  Company Number: None

PATIENT
  Age: 18 Month
  Sex: Female

DRUGS (15)
  1. SULFAMETHOX POW [Concomitant]
  2. CHLONAZEP ODT [Concomitant]
  3. VIGABATRIN. [Suspect]
     Active Substance: VIGABATRIN
     Indication: EPILEPSY
     Route: 048
     Dates: start: 20170906
  4. KEPPRA SOL [Concomitant]
  5. AZITHROMYCIN SUS [Concomitant]
  6. ONFI SUS [Concomitant]
  7. LEVETIRACETA SOL [Concomitant]
  8. MULTIVITAMIN FL [Concomitant]
  9. CITRA PH SOL [Concomitant]
  10. IPRATROPIUM SOL [Concomitant]
  11. IRON SUPPLMT DRO [Concomitant]
  12. FIRST-OMEPRA SUS [Concomitant]
  13. ALBUTEROL NEB [Concomitant]
  14. HYDROGEN PER SOL [Concomitant]
  15. POT CITRATE [Concomitant]
     Active Substance: POTASSIUM CITRATE

REACTIONS (1)
  - Dyspnoea [None]

NARRATIVE: CASE EVENT DATE: 20180315
